FAERS Safety Report 10216504 (Version 1)
Quarter: 2014Q2

REPORT INFORMATION
  Report Type: Spontaneous
  Country: US (occurrence: US)
  Receive Date: 20140604
  Receipt Date: 20140604
  Transmission Date: 20141212
  Serious: No
  Sender: FDA-Public Use
  Company Number: US-PFIZER INC-2014149960

PATIENT
  Age: 82 Year
  Sex: Female
  Weight: 72.6 kg

DRUGS (2)
  1. PREMARIN [Suspect]
     Indication: INCONTINENCE
     Dosage: 0.625 MG, 2X/WEEK
     Route: 067
     Dates: start: 1996
  2. ATENOLOL [Concomitant]
     Indication: HYPERTENSION
     Dosage: 75 MG, DAILY

REACTIONS (1)
  - Drug ineffective [Unknown]
